FAERS Safety Report 6235289-X (Version None)
Quarter: 2009Q2

REPORT INFORMATION
  Report Type: 
  Country: None (occurrence: None)
  Receive Date: 20090618
  Receipt Date: 20090604
  Transmission Date: 20091009
  Serious: Yes (Hospitalization)
  Sender: FDA-Public Use
  Company Number: BR-GENENTECH-283914

PATIENT
  Sex: Female

DRUGS (3)
  1. MABTHERA [Suspect]
     Indication: RHEUMATOID ARTHRITIS
     Dosage: 2000 MG, UNK
     Route: 042
     Dates: start: 20080901
  2. MABTHERA [Suspect]
     Dosage: 1000 MG, UNK
     Dates: start: 20090505
  3. MABTHERA [Suspect]
     Dosage: 2000 MG, UNK
     Dates: start: 20090528

REACTIONS (1)
  - RETINAL DETACHMENT [None]
